FAERS Safety Report 4955700-1 (Version None)
Quarter: 2006Q1

REPORT INFORMATION
  Report Type: 
  Country: None (occurrence: None)
  Receive Date: 20060323
  Receipt Date: 20060310
  Transmission Date: 20060701
  Serious: Yes (Other)
  Sender: FDA-Public Use
  Company Number: 200610124BNE

PATIENT
  Age: 51 Year
  Sex: Male

DRUGS (14)
  1. LEVITRA [Suspect]
     Indication: ERECTILE DYSFUNCTION
     Dates: end: 20050901
  2. CIALIS [Concomitant]
  3. MONTELUKAST [Concomitant]
  4. DERMOVATE [Concomitant]
  5. DICLOFENAC SODIUM [Concomitant]
  6. PAROXETINE HCL [Concomitant]
  7. SENNA [Concomitant]
  8. TRAZODONE HCL [Concomitant]
  9. TRAMADOL HCL [Concomitant]
  10. ATENOLOL [Concomitant]
  11. DOVOBET [Concomitant]
  12. MEPTID [Concomitant]
  13. LORMETAZEPAM [Concomitant]
  14. LUSTRAL [Concomitant]

REACTIONS (9)
  - BLINDNESS UNILATERAL [None]
  - CONVULSION [None]
  - DYSKINESIA [None]
  - EPILEPSY [None]
  - EYE PAIN [None]
  - FALL [None]
  - HEAD TITUBATION [None]
  - MIGRAINE [None]
  - MUSCLE SPASMS [None]
